FAERS Safety Report 25771515 (Version 1)
Quarter: 2025Q3

REPORT INFORMATION
  Report Type: Spontaneous
  Country: US (occurrence: US)
  Receive Date: 20250908
  Receipt Date: 20250908
  Transmission Date: 20251020
  Serious: No
  Sender: DOMPE FARMACEUTICI
  Company Number: US-FARMAPROD-202504-1379

PATIENT
  Sex: Male
  Weight: 74.84 kg

DRUGS (13)
  1. OXERVATE [Suspect]
     Active Substance: CENEGERMIN-BKBJ
     Indication: Neurotrophic keratopathy
     Route: 047
     Dates: start: 20250401
  2. FLOMAX [Concomitant]
     Active Substance: TAMSULOSIN HYDROCHLORIDE
  3. SERTRALINE HYDROCHLORIDE [Concomitant]
     Active Substance: SERTRALINE HYDROCHLORIDE
  4. ESOMEPRAZOLE MAGNESIUM [Concomitant]
     Active Substance: ESOMEPRAZOLE MAGNESIUM
  5. FUROSEMIDE [Concomitant]
     Active Substance: FUROSEMIDE
  6. MAGNESIUM [Concomitant]
     Active Substance: MAGNESIUM
  7. COSOPT [Concomitant]
     Active Substance: DORZOLAMIDE HYDROCHLORIDE\TIMOLOL MALEATE
  8. MOXIFLOXACIN [Concomitant]
     Active Substance: MOXIFLOXACIN
  9. FAMOTIDINE [Concomitant]
     Active Substance: FAMOTIDINE
  10. ROCKLATAN [Concomitant]
     Active Substance: LATANOPROST\NETARSUDIL MESYLATE
  11. ELIQUIS [Concomitant]
     Active Substance: APIXABAN
  12. IPRATROPIUM BROMIDE [Concomitant]
     Active Substance: IPRATROPIUM BROMIDE
  13. ASCORBIC ACID [Concomitant]
     Active Substance: ASCORBIC ACID

REACTIONS (5)
  - Eye pain [Unknown]
  - Swelling of eyelid [Unknown]
  - Eye irritation [Unknown]
  - Eye pruritus [Unknown]
  - Ocular hyperaemia [Unknown]
